FAERS Safety Report 8081760-8 (Version None)
Quarter: 2012Q1

REPORT INFORMATION
  Report Type: 
  Country: None (occurrence: None)
  Receive Date: 20120130
  Receipt Date: 20120118
  Transmission Date: 20120608
  Serious: Yes (Hospitalization, Other)
  Sender: FDA-Public Use
  Company Number: JP-ELI_LILLY_AND_COMPANY-JP201201005341

PATIENT
  Age: 80 Year
  Sex: Male

DRUGS (2)
  1. GEMZAR [Suspect]
     Indication: BILE DUCT CANCER RECURRENT
     Dosage: UNK
     Route: 042
     Dates: start: 20110101
  2. GEMZAR [Suspect]
     Dosage: UNK, 2/M
     Route: 042
     Dates: end: 20110501

REACTIONS (3)
  - PNEUMONIA [None]
  - WHITE BLOOD CELL COUNT DECREASED [None]
  - HEPATIC ATROPHY [None]
